FAERS Safety Report 9921886 (Version 2)
Quarter: 2014Q3

REPORT INFORMATION
  Report Type: Report from Study
  Country: US (occurrence: US)
  Receive Date: 20140225
  Receipt Date: 20140912
  Transmission Date: 20150326
  Serious: Yes (Hospitalization)
  Sender: FDA-Public Use
  Company Number: US-TEVA-464240USA

PATIENT
  Age: 60 Year
  Sex: Female
  Weight: 66.21 kg

DRUGS (12)
  1. INVESTIGATIONAL DRUG [Suspect]
     Active Substance: INVESTIGATIONAL PRODUCT
     Indication: SARCOMA METASTATIC
     Dosage: TOTAL DOSE 550 MG, CYCLE 2/DAY 8
     Route: 042
     Dates: start: 20130606
  2. DOXORUBICIN NOS [Suspect]
     Active Substance: DOXORUBICIN
     Dosage: 75 MG/M2, TOTAL DOSE 144.75 MG, BOLUS, CYCLE 2
     Dates: start: 20130627
  3. NYSTATIN. [Concomitant]
     Active Substance: NYSTATIN
  4. INVESTIGATIONAL DRUG [Suspect]
     Active Substance: INVESTIGATIONAL PRODUCT
     Dates: start: 20130703, end: 20130703
  5. DOCETAXEL [Concomitant]
     Active Substance: DOCETAXEL
  6. DOXORUBICIN NOS [Suspect]
     Active Substance: DOXORUBICIN
     Indication: SARCOMA METASTATIC
     Dates: start: 20130606
  7. SCOPOLAMINE [Concomitant]
     Active Substance: SCOPOLAMINE
  8. LORAZEPAM. [Concomitant]
     Active Substance: LORAZEPAM
  9. GEMCITABINE [Concomitant]
     Active Substance: GEMCITABINE\GEMCITABINE HYDROCHLORIDE
  10. DOCUSATE [Concomitant]
     Active Substance: DOCUSATE
  11. DEXAMETHASONE. [Concomitant]
     Active Substance: DEXAMETHASONE
  12. PROCHLORPERAZINE. [Concomitant]
     Active Substance: PROCHLORPERAZINE

REACTIONS (1)
  - Presyncope [Recovered/Resolved]

NARRATIVE: CASE EVENT DATE: 20130801
